FAERS Safety Report 17809451 (Version 1)
Quarter: 2020Q2

REPORT INFORMATION
  Report Type: Spontaneous
  Country: ES (occurrence: ES)
  Receive Date: 20200520
  Receipt Date: 20200520
  Transmission Date: 20200714
  Serious: Yes (Hospitalization)
  Sender: FDA-Public Use
  Company Number: ES-MYLANLABS-2020M1049025

PATIENT
  Age: 66 Year
  Sex: Female

DRUGS (12)
  1. ACETYLSALICYLIC ACID [Concomitant]
     Active Substance: ASPIRIN
     Dosage: 100 MILLIGRAM, QD 1X / DAY
     Route: 065
  2. CASENLAX [Concomitant]
     Dosage: 1 DOSAGE FORM, Q8H 3X / DAY
     Route: 065
  3. LYRICA [Concomitant]
     Active Substance: PREGABALIN
     Dosage: 75 MILLIGRAM, BID (12 HOURS)
     Route: 065
  4. INSULIN ACTRAPID MC [Concomitant]
     Dosage: UNK UNK,1-1-0-1
     Route: 065
  5. ENEMA CASEN                        /01858901/ [Concomitant]
     Dosage: UNK 250 ML/48 HOURS IF NO DISPOSITIONS
     Route: 065
  6. INSULIN GLARGINE [Concomitant]
     Active Substance: INSULIN GLARGINE
     Dosage: 16 INTERNATIONAL UNIT, QD (1X / DAY)
     Route: 065
  7. AIRFLUSAL FORSPIRO [Concomitant]
     Active Substance: FLUTICASONE PROPIONATE\SALMETEROL XINAFOATE
     Dosage: UNK UNK, BID (50/250 MG/12H)
     Route: 065
  8. SERTRALINE [Concomitant]
     Active Substance: SERTRALINE HYDROCHLORIDE
     Dosage: 50 MILLIGRAM, QD ( 1X / DAY)
     Route: 065
  9. NEMEA [Concomitant]
     Active Substance: CLOZAPINE
     Dosage: 100 MILLIGRAM 0.5-0-2
     Route: 065
  10. OMEPRAZOLE. [Suspect]
     Active Substance: OMEPRAZOLE
     Indication: PRODUCT USED FOR UNKNOWN INDICATION
     Dosage: 20 MILLIGRAM, QD (1X / DAY)
     Route: 065
  11. SPIRIVA [Concomitant]
     Active Substance: TIOTROPIUM BROMIDE MONOHYDRATE
     Dosage: 1 DOSAGE FORM, QD 1X / DAY
     Route: 065
  12. VITAMIN B12 [Concomitant]
     Active Substance: CYANOCOBALAMIN
     Dosage: UNK, BI-MONTHLY AMPULES

REACTIONS (2)
  - Pneumatosis intestinalis [Recovered/Resolved]
  - Dolichocolon [Recovered/Resolved]

NARRATIVE: CASE EVENT DATE: 20190701
